FAERS Safety Report 9338933 (Version 1)
Quarter: 2013Q2

REPORT INFORMATION
  Report Type: Spontaneous
  Country: JP (occurrence: JP)
  Receive Date: 20130610
  Receipt Date: 20130610
  Transmission Date: 20140414
  Serious: Yes (Other)
  Sender: FDA-Public Use
  Company Number: JP-PFIZER INC-2013171188

PATIENT
  Age: 60 Year
  Sex: Female

DRUGS (4)
  1. IRINOTECAN HCL [Suspect]
     Indication: COLON CANCER
     Dosage: 180 MG, 1X/DAY
     Route: 041
     Dates: start: 20130306
  2. ISOVORIN [Suspect]
     Indication: COLON CANCER
     Dosage: 250 MG, 1X/DAY
     Route: 041
     Dates: start: 20130306
  3. AVASTIN [Suspect]
     Indication: COLON CANCER
     Dosage: 200 MG, 1X/DAY
     Route: 041
     Dates: start: 20130306
  4. 5-FU [Concomitant]
     Indication: COLON CANCER
     Dosage: UNK
     Dates: start: 20130306

REACTIONS (3)
  - Post procedural haemorrhage [Not Recovered/Not Resolved]
  - Oedema [Not Recovered/Not Resolved]
  - Gastrointestinal stoma complication [Not Recovered/Not Resolved]
